FAERS Safety Report 14401044 (Version 1)
Quarter: 2018Q1

REPORT INFORMATION
  Report Type: Spontaneous
  Country: US (occurrence: US)
  Receive Date: 20180117
  Receipt Date: 20180117
  Transmission Date: 20180509
  Serious: No
  Sender: FDA-Public Use
  Company Number: US-BAYER-2018-010647

PATIENT
  Age: 88 Year
  Sex: Female
  Weight: 62 kg

DRUGS (4)
  1. NAPROXEN. [Concomitant]
     Active Substance: NAPROXEN
     Dosage: UNK
  2. MIRALAX [Suspect]
     Active Substance: POLYETHYLENE GLYCOL 3350
     Indication: GASTROINTESTINAL DISORDER
     Route: 048
  3. ALOPURINOL [Concomitant]
     Active Substance: ALLOPURINOL
     Dosage: UNK
  4. SUFENTANIL NARCO-MED [Concomitant]
     Dosage: UNK

REACTIONS (2)
  - Product use issue [Unknown]
  - Therapeutic product ineffective [Unknown]
